FAERS Safety Report 9643005 (Version 1)
Quarter: 2013Q4

REPORT INFORMATION
  Report Type: Spontaneous
  Country: FR (occurrence: None)
  Receive Date: 20131022
  Receipt Date: 20131022
  Transmission Date: 20140711
  Serious: Yes (Other)
  Sender: FDA-Public Use
  Company Number: SYM-2013-11657

PATIENT
  Age: 65 Year
  Sex: Male

DRUGS (3)
  1. FLAGYL (METRONDIAZOLE) (FILM-COATED TABLET) (METRONDIAZOLE) [Suspect]
     Indication: GASTRITIS
     Route: 048
     Dates: start: 20130829, end: 20130830
  2. ZECLAR (CLARITHROMYCIN) (FILM-COATED TABLE) (CLARITHROMYCIN) [Suspect]
     Indication: GASTRITIS
     Route: 048
     Dates: start: 20130829, end: 20130830
  3. CLAMOXYL (AMOXICILLIN) [Suspect]
     Indication: GASTRITIS
     Route: 048
     Dates: start: 20130826, end: 20130830

REACTIONS (4)
  - Balance disorder [None]
  - Dizziness [None]
  - Visual impairment [None]
  - Condition aggravated [None]
